FAERS Safety Report 8410144-5 (Version None)
Quarter: 2012Q2

REPORT INFORMATION
  Report Type: 
  Country: None (occurrence: None)
  Receive Date: 20120605
  Receipt Date: 20120529
  Transmission Date: 20120825
  Serious: Yes (Other)
  Sender: FDA-Public Use
  Company Number: PHFR2011GB02767

PATIENT
  Sex: Male
  Weight: 80 kg

DRUGS (7)
  1. CLOZARIL [Suspect]
     Indication: PSYCHOTIC DISORDER
     Route: 048
     Dates: start: 20040121
  2. METFORMIN HCL [Concomitant]
  3. ZOPICLONE [Concomitant]
     Indication: INSOMNIA
     Dosage: 7.5 MG NOCTE
     Route: 048
  4. PIRENZEPINE [Concomitant]
     Indication: SALIVARY HYPERSECRETION
     Dosage: 50 MG, BID
     Route: 048
  5. GLICLAZIDE [Concomitant]
  6. CLOZARIL [Suspect]
     Dosage: 350MG DAILY
     Route: 048
  7. CITALOPRAM [Concomitant]
     Indication: DEPRESSION
     Dosage: 20 MG, QD

REACTIONS (6)
  - MEAN CELL HAEMOGLOBIN INCREASED [None]
  - DIFFERENTIAL WHITE BLOOD CELL COUNT ABNORMAL [None]
  - GAMMA-GLUTAMYLTRANSFERASE INCREASED [None]
  - MEAN CELL VOLUME INCREASED [None]
  - HEPATIC STEATOSIS [None]
  - EOSINOPHIL COUNT INCREASED [None]
